FAERS Safety Report 5242940-X (Version None)
Quarter: 2007Q1

REPORT INFORMATION
  Report Type: 
  Country: None (occurrence: None)
  Receive Date: 20070221
  Receipt Date: 20070209
  Transmission Date: 20070707
  Serious: Yes (Hospitalization, Other)
  Sender: FDA-Public Use
  Company Number: HQWYE669418JAN05

PATIENT
  Age: 42 Year
  Sex: Male
  Weight: 85 kg

DRUGS (6)
  1. EFFEXOR [Suspect]
     Indication: DEPRESSION
     Route: 048
     Dates: start: 20040401, end: 20041220
  2. EFFEXOR [Suspect]
     Indication: PANIC DISORDER WITH AGORAPHOBIA
  3. QUILONORM [Suspect]
     Indication: DEPRESSION
     Route: 048
     Dates: start: 19990101, end: 20041220
  4. QUILONORM [Suspect]
     Indication: AGORAPHOBIA
  5. LORAZEPAM [Concomitant]
     Indication: ANXIETY
     Route: 048
     Dates: start: 19950101, end: 20070101
  6. ZOLPIDEM TARTRATE [Concomitant]
     Dosage: IN RESERVE

REACTIONS (9)
  - CALCULUS URINARY [None]
  - DIABETES INSIPIDUS [None]
  - HEPATIC ENZYME INCREASED [None]
  - HYPERTENSIVE ENCEPHALOPATHY [None]
  - HYPOKALAEMIA [None]
  - HYPOTHYROIDISM [None]
  - POLYCYTHAEMIA [None]
  - RENAL FAILURE [None]
  - VENTRICULAR HYPERTROPHY [None]
